FAERS Safety Report 8262720-0 (Version None)
Quarter: 2012Q1

REPORT INFORMATION
  Report Type: 
  Country: None (occurrence: None)
  Receive Date: 20120327
  Receipt Date: 20080603
  Transmission Date: 20120608
  Serious: Yes (Hospitalization)
  Sender: FDA-Public Use
  Company Number: PHEH2008US04492

PATIENT
  Age: 86 Year
  Sex: Male
  Weight: 117 kg

DRUGS (5)
  1. COUMADIN [Concomitant]
  2. SYNTHROID [Concomitant]
  3. GLEEVEC [Suspect]
     Indication: CHRONIC MYELOID LEUKAEMIA
     Dosage: 400 MG, QD, ORAL
     Route: 048
  4. LISINOPRIL [Concomitant]
  5. CARTIA XT [Concomitant]

REACTIONS (3)
  - LOCALISED OEDEMA [None]
  - OEDEMA PERIPHERAL [None]
  - OEDEMA GENITAL [None]
